FAERS Safety Report 20865027 (Version 1)
Quarter: 2022Q2

REPORT INFORMATION
  Report Type: Spontaneous
  Country: US (occurrence: US)
  Receive Date: 20220524
  Receipt Date: 20220524
  Transmission Date: 20220721
  Serious: No
  Sender: FDA-Public Use
  Company Number: US-TEVA-2022-US-2032991

PATIENT
  Age: 69 Year
  Sex: Male

DRUGS (2)
  1. CEPHALEXIN [Suspect]
     Active Substance: CEPHALEXIN
     Indication: Localised infection
     Dosage: 500 MG , 2 TABLETS THE FIRST DAY
     Dates: start: 20220426
  2. CEPHALEXIN [Suspect]
     Active Substance: CEPHALEXIN
     Dosage: 500 MG , 4 TABLETS THE NEXT DAY
     Dates: start: 20220427

REACTIONS (2)
  - Feeling abnormal [Not Recovered/Not Resolved]
  - Fatigue [Not Recovered/Not Resolved]

NARRATIVE: CASE EVENT DATE: 20220426
